FAERS Safety Report 9927845 (Version 1)
Quarter: 2014Q1

REPORT INFORMATION
  Report Type: Report from Study
  Country: US (occurrence: US)
  Receive Date: 20140227
  Receipt Date: 20140227
  Transmission Date: 20141002
  Serious: Yes (Other)
  Sender: FDA-Public Use
  Company Number: US-ROCHE-1339198

PATIENT
  Age: 36 Year
  Sex: Male

DRUGS (5)
  1. LUCENTIS [Suspect]
     Indication: DIABETIC RETINAL OEDEMA
     Route: 050
  2. LUCENTIS [Suspect]
     Dosage: OR PRN
     Route: 050
     Dates: start: 20110912, end: 20120213
  3. LUCENTIS [Suspect]
     Dosage: OU
     Route: 050
     Dates: start: 20120326
  4. LUCENTIS [Suspect]
     Dosage: OS
     Route: 050
     Dates: start: 20110620, end: 20110620
  5. AVASTIN [Suspect]
     Indication: DIABETIC RETINAL OEDEMA
     Dosage: OD
     Route: 050

REACTIONS (12)
  - Diabetic retinal oedema [Unknown]
  - Macular oedema [Unknown]
  - Off label use [Unknown]
  - Vitreous floaters [Unknown]
  - Visual acuity reduced [Unknown]
  - Diabetic retinopathy [Unknown]
  - Cataract [Unknown]
  - Retinal aneurysm [Unknown]
  - Cataract nuclear [Unknown]
  - Retinal haemorrhage [Unknown]
  - Overdose [Unknown]
  - Retinal disorder [Unknown]
